FAERS Safety Report 8732528 (Version 2)
Quarter: 2012Q4

REPORT INFORMATION
  Report Type: 
  Country: US (occurrence: US)
  Receive Date: 20120820
  Receipt Date: 20121204
  Transmission Date: 20130627
  Serious: Yes (Death)
  Sender: FDA-Public Use
  Company Number: US-ASTRAZENECA-2012SE57828

PATIENT
  Age: 47 Year
  Sex: Male

DRUGS (5)
  1. SEROQUEL [Suspect]
     Indication: DEPRESSION
     Route: 048
     Dates: start: 20100816
  2. SEROQUEL [Suspect]
     Indication: SCHIZOAFFECTIVE DISORDER
     Route: 048
     Dates: start: 20100816
  3. SEROQUEL [Suspect]
     Indication: ALCOHOLISM
     Route: 048
     Dates: start: 20100816
  4. LATUDA [Concomitant]
  5. TRAZODONE [Concomitant]

REACTIONS (1)
  - Myocardial infarction [Fatal]
